FAERS Safety Report 10200849 (Version 1)
Quarter: 2014Q2

REPORT INFORMATION
  Report Type: Report from Study
  Country: GR (occurrence: GR)
  Receive Date: 20140528
  Receipt Date: 20140528
  Transmission Date: 20141212
  Serious: Yes (Life-Threatening, Disabling)
  Sender: FDA-Public Use
  Company Number: GR-ROCHE-1408071

PATIENT
  Age: 25 Year
  Sex: Male
  Weight: 65 kg

DRUGS (1)
  1. OMALIZUMAB [Suspect]
     Indication: URTICARIA CHRONIC
     Dosage: 2X150 MG
     Route: 065
     Dates: start: 201307

REACTIONS (4)
  - Lymphadenopathy [Unknown]
  - Adrenal disorder [Unknown]
  - Breast swelling [Unknown]
  - Off label use [Unknown]
